FAERS Safety Report 22163481 (Version 2)
Quarter: 2023Q2

REPORT INFORMATION
  Report Type: Spontaneous
  Country: GB (occurrence: GB)
  Receive Date: 20230401
  Receipt Date: 20230502
  Transmission Date: 20230722
  Serious: Yes (Hospitalization, Other)
  Sender: FDA-Public Use
  Company Number: None

PATIENT
  Age: 57 Year
  Sex: Female
  Weight: 89 kg

DRUGS (2)
  1. ATORVASTATIN [Suspect]
     Active Substance: ATORVASTATIN
     Indication: Adverse drug reaction
     Dosage: 20 MG ONCE DAILY
     Dates: start: 20221031, end: 20230303
  2. CLARITHROMYCIN [Suspect]
     Active Substance: CLARITHROMYCIN
     Indication: Adverse drug reaction
     Dosage: 500 MG TWICE A DAY
     Dates: start: 20230227, end: 20230303

REACTIONS (5)
  - Labelled drug-drug interaction medication error [Unknown]
  - Psychotic disorder [Recovered/Resolved]
  - Confusional state [Unknown]
  - Insomnia [Unknown]
  - Disorientation [Unknown]

NARRATIVE: CASE EVENT DATE: 20230303
